FAERS Safety Report 9562138 (Version 1)
Quarter: 2013Q3

REPORT INFORMATION
  Report Type: Spontaneous
  Country: US (occurrence: None)
  Receive Date: 20130830
  Receipt Date: 20130830
  Transmission Date: 20140515
  Serious: Yes (Other)
  Sender: FDA-Public Use
  Company Number: AMAG201203156

PATIENT
  Age: 67 Year
  Sex: Male

DRUGS (1)
  1. FERAHEME [Suspect]
     Route: 042
     Dates: start: 20121119, end: 20121119

REACTIONS (1)
  - Hypotension [None]
